FAERS Safety Report 7360333-6 (Version None)
Quarter: 2011Q1

REPORT INFORMATION
  Report Type: 
  Country: None (occurrence: None)
  Receive Date: 20110318
  Receipt Date: 20100817
  Transmission Date: 20110831
  Serious: Yes (Hospitalization, Other)
  Sender: FDA-Public Use
  Company Number: US-BAYER-201028081NA

PATIENT
  Sex: Female
  Weight: 67 kg

DRUGS (10)
  1. YAZ [Suspect]
     Indication: PRODUCT USED FOR UNKNOWN INDICATION
     Route: 048
     Dates: start: 20070501, end: 20081001
  2. ZEGERID [Concomitant]
     Dosage: 40 MG, UNK
     Dates: start: 20080301
  3. VENLAFAXINE [Concomitant]
     Dosage: 75 MG, UNK
     Route: 048
     Dates: start: 20080201
  4. VENLAFAXINE [Concomitant]
     Dosage: 37.5 MG, UNK
     Route: 048
     Dates: start: 20080301
  5. NEXIUM [Concomitant]
     Dosage: 40 MG, UNK
     Route: 048
     Dates: start: 20071001
  6. NSAID'S [Concomitant]
     Dosage: UNK UNK, PRN
  7. OXYCODONE HCL AND ACETAMINOPHEN [Concomitant]
     Dosage: 5 MG, UNK
     Route: 048
     Dates: start: 20071001
  8. CARAFATE [Concomitant]
     Dosage: 0.1 MG/ML, UNK
     Route: 048
     Dates: start: 20101001
  9. DICYCLOMINE [Concomitant]
     Dosage: 10 MG, UNK
     Route: 048
     Dates: start: 20071001
  10. FLAGYL [Concomitant]
     Dosage: UNK
     Dates: start: 20080201

REACTIONS (7)
  - CHOLECYSTITIS CHRONIC [None]
  - FOCAL NODULAR HYPERPLASIA [None]
  - HEPATIC NEOPLASM [None]
  - CHOLECYSTECTOMY [None]
  - CHOLESTEROSIS [None]
  - MENTAL DISORDER [None]
  - CHOLELITHIASIS [None]
